FAERS Safety Report 8379406-4 (Version None)
Quarter: 2012Q1

REPORT INFORMATION
  Report Type: 
  Country: None (occurrence: None)
  Receive Date: 20120323
  Receipt Date: 20110715
  Transmission Date: 20120608
  Serious: Yes (Other)
  Sender: FDA-Public Use
  Company Number: 163-21880-11032086

PATIENT
  Age: 65 Year
  Sex: Male
  Weight: 67.586 kg

DRUGS (5)
  1. DECADRON [Concomitant]
  2. CYTOXAN [Concomitant]
  3. REVLIMID [Suspect]
     Indication: MULTIPLE MYELOMA
     Dosage: 25 MG, 1 IN 1 D, PO 20-10MG, DAILY, PO 15 MG, DAILY X 21 DAYS OF 28, PO
     Route: 048
     Dates: start: 20100701
  4. REVLIMID [Suspect]
     Indication: MULTIPLE MYELOMA
     Dosage: 25 MG, 1 IN 1 D, PO 20-10MG, DAILY, PO 15 MG, DAILY X 21 DAYS OF 28, PO
     Route: 048
     Dates: start: 20090901
  5. REVLIMID [Suspect]
     Indication: MULTIPLE MYELOMA
     Dosage: 25 MG, 1 IN 1 D, PO 20-10MG, DAILY, PO 15 MG, DAILY X 21 DAYS OF 28, PO
     Route: 048
     Dates: start: 20100101, end: 20110712

REACTIONS (1)
  - WHITE BLOOD CELL COUNT DECREASED [None]
